FAERS Safety Report 5152393-8 (Version None)
Quarter: 2006Q4

REPORT INFORMATION
  Report Type: 
  Country: None (occurrence: None)
  Receive Date: 20061109
  Receipt Date: 20061027
  Transmission Date: 20070319
  Serious: Yes (Other)
  Sender: FDA-Public Use
  Company Number: 879#1#2006-00001

PATIENT
  Age: 42 Year
  Sex: Female

DRUGS (4)
  1. PROSTAVASIN-20 (ALPROSTADIL (PAOD)) [Suspect]
     Indication: ARTERIAL OCCLUSIVE DISEASE
     Dosage: 60 MCG (20 MCG 3 IN 1 DAY (S)) INTRAVENOUS DRIP
     Route: 041
     Dates: start: 20061002, end: 20061012
  2. ASPIRIN [Concomitant]
  3. CARBAMAZEPINE [Concomitant]
  4. OMEPRAZOLE [Concomitant]

REACTIONS (4)
  - ABDOMINAL PAIN [None]
  - CHOLECYSTITIS [None]
  - PYREXIA [None]
  - TREMOR [None]
